FAERS Safety Report 9749266 (Version 2)
Quarter: 2013Q4

REPORT INFORMATION
  Report Type: Spontaneous
  Country: US (occurrence: US)
  Receive Date: 20131212
  Receipt Date: 20131212
  Transmission Date: 20140711
  Serious: Yes (Other)
  Sender: FDA-Public Use
  Company Number: US-TEVA-393522USA

PATIENT
  Age: 52 Year
  Sex: Female
  Weight: 85.81 kg

DRUGS (5)
  1. PARAGARD 380A [Suspect]
     Indication: CONTRACEPTION
     Route: 015
     Dates: start: 2005, end: 20130319
  2. LOVASTATIN [Concomitant]
     Indication: HYPERCHOLESTEROLAEMIA
  3. SINGULAIR [Concomitant]
     Indication: ASTHMA
  4. HYDROXYZINE [Concomitant]
     Indication: ANXIETY
  5. CYMBALTA [Concomitant]

REACTIONS (4)
  - Medical device complication [Not Recovered/Not Resolved]
  - Embedded device [Not Recovered/Not Resolved]
  - Vaginal haemorrhage [Unknown]
  - Pain [Unknown]
